FAERS Safety Report 8879749 (Version 2)
Quarter: 2013Q1

REPORT INFORMATION
  Report Type: Spontaneous
  Country: US (occurrence: US)
  Receive Date: 20121031
  Receipt Date: 20130109
  Transmission Date: 20140127
  Serious: Yes (Death)
  Sender: FDA-Public Use
  Company Number: US-GILEAD-2012-0063755

PATIENT
  Sex: Female

DRUGS (2)
  1. LETAIRIS [Suspect]
     Indication: PULMONARY ARTERIAL HYPERTENSION
     Dosage: 10 MG, PRN
     Route: 048
     Dates: start: 20100312
  2. ADCIRCA [Concomitant]
     Dates: start: 20100608, end: 20121025

REACTIONS (2)
  - Pulmonary arterial hypertension [Fatal]
  - Cardiac failure congestive [Fatal]
